FAERS Safety Report 7929475-8 (Version None)
Quarter: 2011Q4

REPORT INFORMATION
  Report Type: 
  Country: None (occurrence: None)
  Receive Date: 20111121
  Receipt Date: 20111110
  Transmission Date: 20120403
  Serious: No
  Sender: FDA-Public Use
  Company Number: US-BIOGENIDEC-2011BI043603

PATIENT
  Age: 32 Year
  Sex: Female

DRUGS (6)
  1. AVONEX [Suspect]
     Route: 030
     Dates: end: 20100816
  2. AVONEX [Suspect]
     Route: 030
     Dates: start: 20110413
  3. AVONEX [Suspect]
     Indication: MULTIPLE SCLEROSIS
     Route: 030
     Dates: start: 20111001
  4. AVONEX [Suspect]
     Route: 030
     Dates: start: 20100310
  5. AVONEX [Suspect]
     Route: 030
     Dates: end: 20111001
  6. IBUPROFEN [Concomitant]
     Indication: PREMEDICATION

REACTIONS (3)
  - FATIGUE [None]
  - HYPERHIDROSIS [None]
  - NAUSEA [None]
